FAERS Safety Report 5819004-7 (Version None)
Quarter: 2008Q3

REPORT INFORMATION
  Report Type: 
  Country: None (occurrence: None)
  Receive Date: 20080721
  Receipt Date: 20080721
  Transmission Date: 20090109
  Serious: Yes (Other)
  Sender: FDA-Public Use
  Company Number: None

PATIENT
  Age: 51 Year
  Sex: Female
  Weight: 63.5036 kg

DRUGS (1)
  1. LEVAQUIN [Suspect]
     Indication: RESPIRATORY TRACT INFECTION
     Dosage: 500 MG DAIL PO
     Route: 048
     Dates: start: 20070711, end: 20070712

REACTIONS (11)
  - ABNORMAL DREAMS [None]
  - ARTHRALGIA [None]
  - DRY EYE [None]
  - EYE PAIN [None]
  - LACRIMATION DECREASED [None]
  - MOBILITY DECREASED [None]
  - MUSCULOSKELETAL STIFFNESS [None]
  - PAIN IN EXTREMITY [None]
  - TENDONITIS [None]
  - TENOSYNOVITIS [None]
  - VAGINAL DISCHARGE [None]
